FAERS Safety Report 6236466-4 (Version None)
Quarter: 2009Q2

REPORT INFORMATION
  Report Type: 
  Country: None (occurrence: None)
  Receive Date: 20090619
  Receipt Date: 20090612
  Transmission Date: 20091009
  Serious: Yes (Other)
  Sender: FDA-Public Use
  Company Number: A0792143A

PATIENT
  Age: 56 Year
  Sex: Female

DRUGS (4)
  1. COMMIT [Suspect]
     Dates: start: 20090508, end: 20090509
  2. NICORETTE [Suspect]
     Dates: start: 20090520, end: 20090530
  3. NICORETTE (MINT) [Suspect]
     Dates: start: 20090601
  4. NICODERM CQ [Suspect]
     Indication: SMOKING CESSATION THERAPY
     Route: 062

REACTIONS (9)
  - DRUG ADMINISTRATION ERROR [None]
  - DRUG INEFFECTIVE [None]
  - EMOTIONAL DISORDER [None]
  - FEELING ABNORMAL [None]
  - GASTRIC ULCER [None]
  - OVERDOSE [None]
  - PALPITATIONS [None]
  - PRODUCT QUALITY ISSUE [None]
  - TONGUE ULCERATION [None]
